FAERS Safety Report 25853487 (Version 1)
Quarter: 2025Q3

REPORT INFORMATION
  Report Type: Spontaneous
  Country: BR (occurrence: BR)
  Receive Date: 20250926
  Receipt Date: 20250926
  Transmission Date: 20251021
  Serious: Yes (Other)
  Sender: AMGEN
  Company Number: BR-AMGEN-BRASP2025187753

PATIENT
  Age: 26 Month
  Sex: Female

DRUGS (2)
  1. BLINATUMOMAB [Suspect]
     Active Substance: BLINATUMOMAB
     Indication: B-cell type acute leukaemia
     Route: 065
  2. CARFILZOMIB [Suspect]
     Active Substance: CARFILZOMIB
     Indication: B-cell type acute leukaemia
     Route: 065

REACTIONS (4)
  - Graft versus host disease in skin [Unknown]
  - Therapy non-responder [Unknown]
  - Drug effective for unapproved indication [Unknown]
  - Off label use [Unknown]
